FAERS Safety Report 15021720 (Version 1)
Quarter: 2018Q2

REPORT INFORMATION
  Report Type: Spontaneous
  Country: US (occurrence: US)
  Receive Date: 20180524
  Receipt Date: 20180524
  Transmission Date: 20180711
  Serious: Yes (Death)
  Sender: FDA-Public Use
  Company Number: None

PATIENT
  Age: 93 Year
  Sex: Male

DRUGS (26)
  1. LASIX [Concomitant]
     Active Substance: FUROSEMIDE
  2. TRAMADOL HCL [Concomitant]
     Active Substance: TRAMADOL HYDROCHLORIDE
  3. FISH OIL [Concomitant]
     Active Substance: FISH OIL
  4. ZOLPIDEM [Concomitant]
     Active Substance: ZOLPIDEM\ZOLPIDEM TARTRATE
  5. TAMSULOSIN [Concomitant]
     Active Substance: TAMSULOSIN
  6. ATORVASTATIN [Concomitant]
     Active Substance: ATORVASTATIN
  7. GLIPIZIDE. [Concomitant]
     Active Substance: GLIPIZIDE
  8. CYANOCOBALAM [Concomitant]
     Active Substance: CYANOCOBALAMIN
  9. CLONIDINE. [Concomitant]
     Active Substance: CLONIDINE
  10. ASPIRIN. [Concomitant]
     Active Substance: ASPIRIN
  11. ALPRAZOLAM. [Concomitant]
     Active Substance: ALPRAZOLAM
  12. LATANOPROST. [Concomitant]
     Active Substance: LATANOPROST
  13. TEMOZOLOMIDE 140MG [Suspect]
     Active Substance: TEMOZOLOMIDE
     Indication: NEOPLASM MALIGNANT
     Route: 048
     Dates: start: 20180405
  14. DEXAMETHASON [Concomitant]
     Active Substance: DEXAMETHASONE
  15. METOPROL SUC [Concomitant]
  16. MOMETASONE [Concomitant]
     Active Substance: MOMETASONE
  17. FOLIC ACID. [Concomitant]
     Active Substance: FOLIC ACID
  18. PROVENTIL [Concomitant]
     Active Substance: ALBUTEROL
  19. LORAZEPAM. [Concomitant]
     Active Substance: LORAZEPAM
  20. MORPHINE SUL [Concomitant]
     Active Substance: MORPHINE SULFATE
  21. ONDANSETRON [Concomitant]
     Active Substance: ONDANSETRON
  22. TEMOZOLOMIDE 5MG [Suspect]
     Active Substance: TEMOZOLOMIDE
     Indication: NEOPLASM MALIGNANT
     Route: 048
     Dates: start: 20180406
  23. SYMBICORT [Concomitant]
     Active Substance: BUDESONIDE\FORMOTEROL FUMARATE DIHYDRATE
  24. OMEPRAZOLE. [Concomitant]
     Active Substance: OMEPRAZOLE
  25. SPIRONOLACT [Concomitant]
     Active Substance: SPIRONOLACTONE
  26. GABAPENTIN. [Concomitant]
     Active Substance: GABAPENTIN

REACTIONS (1)
  - Death [None]

NARRATIVE: CASE EVENT DATE: 20180518
